FAERS Safety Report 7482631-8 (Version None)
Quarter: 2011Q2

REPORT INFORMATION
  Report Type: 
  Country: None (occurrence: None)
  Receive Date: 20110516
  Receipt Date: 20110503
  Transmission Date: 20111010
  Serious: Yes (Disabling, Other)
  Sender: FDA-Public Use
  Company Number: PHHY2011US23379

PATIENT
  Sex: Female
  Weight: 90 kg

DRUGS (5)
  1. AREDIA [Suspect]
     Indication: METASTASES TO BONE
     Dosage: 90 MG, EVERY MONTH
     Dates: start: 19960101, end: 20020101
  2. DECADRON [Concomitant]
     Indication: MULTIPLE MYELOMA
     Dosage: 40 MG, UNK
     Dates: start: 19960101
  3. SCT [Concomitant]
     Indication: MULTIPLE MYELOMA
     Dates: end: 20080901
  4. ZOMETA [Suspect]
     Indication: METASTASES TO BONE
     Dosage: 4 MG, IN 30 MINUTES EVERY MONTH
     Dates: start: 20020101, end: 20050302
  5. VELCADE [Concomitant]
     Indication: MULTIPLE MYELOMA
     Dates: start: 20050601

REACTIONS (10)
  - OSTEONECROSIS OF JAW [None]
  - PALATAL DISORDER [None]
  - APHAGIA [None]
  - SINUS DISORDER [None]
  - PAIN IN JAW [None]
  - GINGIVAL SWELLING [None]
  - GINGIVAL ERYTHEMA [None]
  - TOOTH LOSS [None]
  - SKIN LESION [None]
  - OSTEOMYELITIS [None]
